FAERS Safety Report 6580246-7 (Version None)
Quarter: 2010Q1

REPORT INFORMATION
  Report Type: 
  Country: None (occurrence: None)
  Receive Date: 20100203
  Receipt Date: 20100129
  Transmission Date: 20100710
  Serious: Yes (Death)
  Sender: FDA-Public Use
  Company Number: 2010SP001220

PATIENT
  Age: 83 Year
  Sex: Female

DRUGS (5)
  1. NORCURON [Suspect]
     Indication: GENERAL ANAESTHESIA
     Dosage: 5 MG; ONCE; IV
     Route: 042
     Dates: start: 20091215, end: 20091215
  2. CEFAMANDOLE (CEFAMANDOLE) [Suspect]
     Indication: GENERAL ANAESTHESIA
     Dosage: 750 MG; ONCE; IV
     Route: 042
     Dates: start: 20091215, end: 20091215
  3. ETOMIDATE [Suspect]
     Indication: GENERAL ANAESTHESIA
     Dosage: 24 MG; ONCE; IV
     Route: 042
     Dates: start: 20091215, end: 20091215
  4. SUFENTANIL CITRATE [Suspect]
     Indication: GENERAL ANAESTHESIA
     Dosage: 5 MCG; ONCE;  IV
     Route: 042
     Dates: start: 20091215, end: 20091215
  5. CORGARD [Concomitant]

REACTIONS (2)
  - ANAPHYLACTIC SHOCK [None]
  - CIRCULATORY COLLAPSE [None]
